FAERS Safety Report 18533194 (Version 6)
Quarter: 2020Q4

REPORT INFORMATION
  Report Type: Spontaneous
  Country: US (occurrence: US)
  Receive Date: 20201123
  Receipt Date: 20201211
  Transmission Date: 20210114
  Serious: No
  Sender: FDA-Public Use
  Company Number: US-SA-2020SA324535

PATIENT

DRUGS (1)
  1. DUPIXENT [Suspect]
     Active Substance: DUPILUMAB
     Indication: ASTHMA
     Dosage: 300 MG, QOW
     Route: 058
     Dates: start: 202010

REACTIONS (14)
  - Wrong technique in device usage process [Unknown]
  - Insomnia [Unknown]
  - Incorrect dose administered [Unknown]
  - Joint lock [Unknown]
  - Condition aggravated [Unknown]
  - Grip strength decreased [Unknown]
  - Injection site haemorrhage [Unknown]
  - Pain in extremity [Unknown]
  - Dyspnoea [Unknown]
  - Injection site pain [Unknown]
  - Joint swelling [Unknown]
  - Injection site pain [Unknown]
  - Asthma [Unknown]
  - Arthralgia [Unknown]

NARRATIVE: CASE EVENT DATE: 2020
